FAERS Safety Report 8890702 (Version 2)
Quarter: 2013Q1

REPORT INFORMATION
  Report Type: Report from Study
  Country: US (occurrence: US)
  Receive Date: 20121106
  Receipt Date: 20130130
  Transmission Date: 20140127
  Serious: Yes (Other)
  Sender: FDA-Public Use
  Company Number: US-ABBOTT-12P-163-1002892-00

PATIENT
  Sex: Female
  Weight: 96.25 kg

DRUGS (13)
  1. HUMIRA [Suspect]
     Indication: RHEUMATOID ARTHRITIS
     Dates: start: 201206
  2. NORVASC [Concomitant]
     Indication: HYPERTENSION
  3. SIMVASTATIN [Concomitant]
     Indication: BLOOD CHOLESTEROL INCREASED
  4. PAXIL [Concomitant]
     Indication: DEPRESSION
  5. AMBIEN [Concomitant]
     Indication: INSOMNIA
  6. METHOTREXATE [Concomitant]
     Indication: RHEUMATOID ARTHRITIS
  7. LEFLUNOMIDE [Concomitant]
     Indication: RHEUMATOID ARTHRITIS
  8. SPIRIVA [Concomitant]
     Indication: CHRONIC OBSTRUCTIVE PULMONARY DISEASE
     Dosage: INHALER
  9. VENTALIN [Concomitant]
     Indication: ASTHMA
     Dosage: PUMP
  10. ALBUTEROL [Concomitant]
     Indication: ASTHMA
  11. SINGULAIR [Concomitant]
     Indication: ASTHMA
  12. FOLIC ACID [Concomitant]
     Indication: RHEUMATOID ARTHRITIS
  13. ZYRTEC [Concomitant]
     Indication: HYPERSENSITIVITY

REACTIONS (10)
  - Vaginal haemorrhage [Recovered/Resolved]
  - Neoplasm malignant [Unknown]
  - Injection site pain [Not Recovered/Not Resolved]
  - Injection site paraesthesia [Not Recovered/Not Resolved]
  - Injection site bruising [Not Recovered/Not Resolved]
  - Abdominal pain [Recovered/Resolved]
  - Back pain [Recovered/Resolved]
  - Dyspepsia [Recovered/Resolved]
  - Rash [Not Recovered/Not Resolved]
  - Acne [Not Recovered/Not Resolved]
